FAERS Safety Report 8092205-6 (Version None)
Quarter: 2012Q1

REPORT INFORMATION
  Report Type: 
  Country: None (occurrence: None)
  Receive Date: 20120129
  Receipt Date: 20111205
  Transmission Date: 20120608
  Serious: No
  Sender: FDA-Public Use
  Company Number: US-ABBOTT-11P-163-0873146-00

PATIENT
  Sex: Female

DRUGS (14)
  1. TRAMADOL HCL [Concomitant]
     Indication: PAIN
     Dates: start: 20110601
  2. LIBRAX [Concomitant]
     Indication: IRRITABLE BOWEL SYNDROME
  3. XANAX [Concomitant]
     Indication: ANXIETY
  4. ESTRADIOL [Concomitant]
     Indication: HORMONE REPLACEMENT THERAPY
  5. UNKNOWN MEDICATIONS [Concomitant]
     Indication: CARDIAC DISORDER
  6. CELEXA [Concomitant]
     Indication: DEPRESSION
     Dosage: 5 ML 10 MG 1/2 TEASPOON DAILY
  7. PAMELOR [Concomitant]
     Indication: DEPRESSION
  8. VITAMIN B-12 [Concomitant]
     Indication: SUPPLEMENTATION THERAPY
     Route: 050
  9. HUMIRA [Suspect]
     Route: 058
     Dates: start: 20110830, end: 20111010
  10. HUMIRA [Suspect]
     Indication: ANKYLOSING SPONDYLITIS
     Route: 058
     Dates: start: 20111010
  11. VITAMIN D [Concomitant]
     Indication: SUPPLEMENTATION THERAPY
  12. PRILOSEC [Concomitant]
     Indication: GASTROOESOPHAGEAL REFLUX DISEASE
  13. ATENOLOL [Concomitant]
     Indication: HEART RATE IRREGULAR
  14. XANAX [Concomitant]
     Indication: PANIC ATTACK

REACTIONS (9)
  - INJECTION SITE ERYTHEMA [None]
  - RASH MACULAR [None]
  - INJECTION SITE WARMTH [None]
  - BREAKTHROUGH PAIN [None]
  - INJECTION SITE PRURITUS [None]
  - INJECTION SITE RASH [None]
  - INJECTION SITE REACTION [None]
  - INJECTION SITE HAEMATOMA [None]
  - INJECTION SITE PAIN [None]
